FAERS Safety Report 11323951 (Version 1)
Quarter: 2015Q3

REPORT INFORMATION
  Report Type: Spontaneous
  Country: US (occurrence: US)
  Receive Date: 20150730
  Receipt Date: 20150730
  Transmission Date: 20151125
  Serious: Yes (Other)
  Sender: FDA-Public Use
  Company Number: PHHY2015US089608

PATIENT
  Age: 31 Year
  Sex: Male

DRUGS (1)
  1. MEFLOQUINE [Suspect]
     Active Substance: MEFLOQUINE
     Indication: MALARIA PROPHYLAXIS
     Dosage: 250 MG, QW
     Route: 048

REACTIONS (10)
  - Paranoia [Unknown]
  - Libido decreased [Unknown]
  - Suicidal ideation [Unknown]
  - Nausea [Unknown]
  - Malaise [Unknown]
  - Panic disorder [Unknown]
  - Decreased appetite [Unknown]
  - Depersonalisation [Unknown]
  - Anxiety [Unknown]
  - Alopecia [Unknown]
